FAERS Safety Report 9760422 (Version 1)
Quarter: 2013Q4

REPORT INFORMATION
  Report Type: Spontaneous
  Country: US (occurrence: US)
  Receive Date: 20131216
  Receipt Date: 20131216
  Transmission Date: 20140711
  Serious: No
  Sender: FDA-Public Use
  Company Number: US-PFIZER INC-2013358496

PATIENT
  Age: 65 Year
  Sex: Female
  Weight: 63.49 kg

DRUGS (3)
  1. LYRICA [Suspect]
     Indication: FIBROMYALGIA
     Dosage: 225 MG, 2X/DAY
     Dates: start: 2011
  2. OXYCODONE [Concomitant]
     Indication: OSTEOARTHRITIS
     Dosage: 40 MG, UNK
  3. FENTANYL [Concomitant]
     Indication: PAIN
     Dosage: 100 MG, EVERY 72 HRS

REACTIONS (2)
  - Local swelling [Not Recovered/Not Resolved]
  - Pollakiuria [Not Recovered/Not Resolved]
